FAERS Safety Report 5567863-8 (Version None)
Quarter: 2007Q4

REPORT INFORMATION
  Report Type: 
  Country: None (occurrence: None)
  Receive Date: 20071220
  Receipt Date: 20071211
  Transmission Date: 20080405
  Serious: Yes (Other)
  Sender: FDA-Public Use
  Company Number: FR-ELI_LILLY_AND_COMPANY-FR200710002903

PATIENT
  Age: 21 Year
  Sex: Female
  Weight: 49 kg

DRUGS (3)
  1. ZYPREXA [Suspect]
     Indication: ACUTE PSYCHOSIS
     Dosage: 15 MG, DAILY (1/D)
     Route: 048
     Dates: start: 20051101
  2. ZYPREXA [Suspect]
     Dosage: 5 MG, DAILY (1/D)
     Route: 048
     Dates: start: 20061001
  3. FELIXITA [Concomitant]
     Indication: CONTRACEPTION
     Dosage: UNK, UNKNOWN
     Route: 048
     Dates: start: 20071001, end: 20071009

REACTIONS (1)
  - THROMBOPHLEBITIS [None]
